FAERS Safety Report 5168289-1 (Version None)
Quarter: 2006Q4

REPORT INFORMATION
  Report Type: 
  Country: None (occurrence: None)
  Receive Date: 20061208
  Receipt Date: 20061204
  Transmission Date: 20070319
  Serious: Yes (Hospitalization)
  Sender: FDA-Public Use
  Company Number: FR-MERCK-0612FRA00007

PATIENT
  Age: 61 Year
  Sex: Male

DRUGS (3)
  1. HYZAAR [Suspect]
     Indication: HYPERTENSION
     Route: 048
     Dates: start: 20060212, end: 20060413
  2. TAMSULOSIN HCL [Concomitant]
     Route: 048
     Dates: start: 20051115
  3. COZAAR [Concomitant]
     Indication: HYPERTENSION
     Route: 048
     Dates: end: 20060211

REACTIONS (4)
  - FALL [None]
  - HYPOTENSION [None]
  - MALAISE [None]
  - VERTIGO [None]
